FAERS Safety Report 21619405 (Version 2)
Quarter: 2023Q4

REPORT INFORMATION
  Report Type: Spontaneous
  Country: US (occurrence: US)
  Receive Date: 20221120
  Receipt Date: 20231023
  Transmission Date: 20240110
  Serious: No
  Sender: FDA-Public Use
  Company Number: US-BIOGEN-2022BI01168924

PATIENT
  Sex: Female

DRUGS (2)
  1. SPINRAZA [Suspect]
     Active Substance: NUSINERSEN
     Indication: Spinal muscular atrophy
     Route: 050
     Dates: start: 20211014
  2. SPINRAZA [Suspect]
     Active Substance: NUSINERSEN
     Route: 050

REACTIONS (7)
  - Arthritis [Unknown]
  - Procedural pain [Unknown]
  - Scoliosis [Unknown]
  - Vulvovaginal dryness [Unknown]
  - Blood cholesterol abnormal [Unknown]
  - Spinal disorder [Unknown]
  - Arthropathy [Unknown]
